FAERS Safety Report 6943742-6 (Version None)
Quarter: 2010Q3

REPORT INFORMATION
  Report Type: 
  Country: None (occurrence: None)
  Receive Date: 20100826
  Receipt Date: 20100820
  Transmission Date: 20110219
  Serious: Yes (Hospitalization)
  Sender: FDA-Public Use
  Company Number: A0789286A

PATIENT
  Age: 63 Year
  Sex: Male
  Weight: 176.4 kg

DRUGS (7)
  1. AVANDIA [Suspect]
     Dosage: 8MG PER DAY
     Route: 048
     Dates: start: 20010305, end: 20070325
  2. INSULIN [Concomitant]
  3. ENALAPRIL [Concomitant]
  4. LEXAPRO [Concomitant]
  5. METOPROLOL [Concomitant]
  6. LIPITOR [Concomitant]
  7. BUSPIRONE HCL [Concomitant]

REACTIONS (3)
  - ATRIAL FIBRILLATION [None]
  - CARDIAC FAILURE CONGESTIVE [None]
  - MYOCARDIAL INFARCTION [None]
